FAERS Safety Report 8605751 (Version 2)
Quarter: 2012Q4

REPORT INFORMATION
  Report Type: 
  Country: US (occurrence: US)
  Receive Date: 20120608
  Receipt Date: 20120829
  Transmission Date: 20130627
  Serious: Yes (Death, Other)
  Sender: FDA-Public Use
  Company Number: US-BAXTER-2012BAX007266

PATIENT
  Age: 86 Year
  Sex: Male

DRUGS (1)
  1. DIANEAL LOW CALCIUM [Suspect]
     Indication: PERITONEAL DIALYSIS
     Route: 033

REACTIONS (5)
  - Death [Fatal]
  - Failure to thrive [Unknown]
  - General physical health deterioration [Unknown]
  - Blood albumin decreased [Unknown]
  - Fall [Unknown]
